FAERS Safety Report 4763448-1 (Version None)
Quarter: 2005Q3

REPORT INFORMATION
  Report Type: 
  Country: None (occurrence: None)
  Receive Date: 20050908
  Receipt Date: 20050826
  Transmission Date: 20060218
  Serious: Yes (Hospitalization, Other)
  Sender: FDA-Public Use
  Company Number: US-AMGEN-US148031

PATIENT
  Sex: Male

DRUGS (9)
  1. EPOGEN [Suspect]
     Indication: DIALYSIS
     Route: 058
     Dates: start: 20040701, end: 20050822
  2. QUININE SULFATE [Concomitant]
  3. CYCLOBENZAPRINE HCL [Concomitant]
  4. MEGESTROL [Concomitant]
  5. CALCITRIOL [Concomitant]
  6. LEVOTHYROXINE [Concomitant]
  7. OXAZEPAM [Concomitant]
  8. ACETAMINOPHEN AND HYDROCODONE BITARTRATE [Concomitant]
  9. BLOOD CELLS, PACKED HUMAN [Concomitant]
     Dates: start: 20050304

REACTIONS (3)
  - APLASIA PURE RED CELL [None]
  - BONE MARROW DEPRESSION [None]
  - THERAPEUTIC RESPONSE DECREASED [None]
